FAERS Safety Report 10179573 (Version 1)
Quarter: 2014Q2

REPORT INFORMATION
  Report Type: Other
  Country: CA (occurrence: CA)
  Receive Date: 20140519
  Receipt Date: 20140519
  Transmission Date: 20141212
  Serious: Yes (Other)
  Sender: FDA-Public Use
  Company Number: CA-TARO PHARMACEUTICALS U.S.A., INC-2014SUN01077

PATIENT
  Sex: 0

DRUGS (4)
  1. TARO-WARFARIN TABLETS 5MG [Suspect]
     Indication: PRODUCT USED FOR UNKNOWN INDICATION
     Dosage: 5 MG, QD
     Route: 048
  2. AMLODIPINE [Concomitant]
  3. HYDROCHLOROTHIAZIDE [Concomitant]
  4. SLOW-K [Concomitant]

REACTIONS (2)
  - International normalised ratio decreased [Recovered/Resolved]
  - Product substitution issue [Recovered/Resolved]
